FAERS Safety Report 5579072-7 (Version None)
Quarter: 2007Q4

REPORT INFORMATION
  Report Type: 
  Country: None (occurrence: None)
  Receive Date: 20071228
  Receipt Date: 20071228
  Transmission Date: 20080405
  Serious: Yes (Other)
  Sender: FDA-Public Use
  Company Number: None

PATIENT
  Sex: Female
  Weight: 69.8539 kg

DRUGS (1)
  1. TRIMETHOPRIM [Suspect]
     Indication: CYSTITIS
     Dosage: 100MG   2 DAILY  PO
     Route: 048
     Dates: start: 20071205, end: 20071208

REACTIONS (5)
  - ERYTHEMA [None]
  - PIGMENTATION DISORDER [None]
  - SKIN EXFOLIATION [None]
  - SWELLING [None]
  - URTICARIA [None]
